FAERS Safety Report 4286681-4 (Version None)
Quarter: 2004Q1

REPORT INFORMATION
  Report Type: 
  Country: None (occurrence: None)
  Receive Date: 20040204
  Receipt Date: 20040123
  Transmission Date: 20041129
  Serious: Yes (Hospitalization, Other)
  Sender: FDA-Public Use
  Company Number: NSADSS2001004664

PATIENT
  Age: 42 Year
  Sex: Male
  Weight: 75 kg

DRUGS (2)
  1. REMICADE [Suspect]
     Indication: RHEUMATOID ARTHRITIS
     Dosage: , 1 IN 1 AS NECESSARY, INTRAVENOUS DRIP
     Route: 041
     Dates: start: 20010119, end: 20010119
  2. REMICADE [Suspect]
     Indication: RHEUMATOID ARTHRITIS
     Dosage: , 1 IN 1 AS NECESSARY, INTRAVENOUS DRIP
     Route: 041
     Dates: start: 20010202, end: 20010202

REACTIONS (5)
  - GLOMERULONEPHRITIS PROLIFERATIVE [None]
  - RENAL FAILURE ACUTE [None]
  - THROMBOSIS [None]
  - TUBULOINTERSTITIAL NEPHRITIS [None]
  - WEGENER'S GRANULOMATOSIS [None]
